FAERS Safety Report 6043019-X (Version None)
Quarter: 2009Q1

REPORT INFORMATION
  Report Type: 
  Country: None (occurrence: None)
  Receive Date: 20090119
  Receipt Date: 20090114
  Transmission Date: 20090719
  Serious: Yes (Hospitalization)
  Sender: FDA-Public Use
  Company Number: US-GILEAD-2009-0019834

PATIENT
  Sex: Female

DRUGS (11)
  1. LETAIRIS [Suspect]
     Indication: PULMONARY ARTERIAL HYPERTENSION
     Route: 048
     Dates: start: 20080227
  2. DIGOXIN [Concomitant]
  3. IRON [Concomitant]
  4. PROTONIX [Concomitant]
  5. SOMA [Concomitant]
  6. NORTRIPTYLINE HCL [Concomitant]
  7. WELLBUTRIN [Concomitant]
  8. SPIRONOLACTONE [Concomitant]
  9. PROZAC [Concomitant]
  10. REVATIO [Concomitant]
  11. SYMBICORT [Concomitant]

REACTIONS (3)
  - HEART RATE DECREASED [None]
  - PULMONARY OEDEMA [None]
  - UNEVALUABLE EVENT [None]
